FAERS Safety Report 18905777 (Version 1)
Quarter: 2021Q1

REPORT INFORMATION
  Report Type: Spontaneous
  Country: BG (occurrence: BG)
  Receive Date: 20210217
  Receipt Date: 20210217
  Transmission Date: 20210420
  Serious: Yes (Other)
  Sender: FDA-Public Use
  Company Number: BG-ASTRAZENECA-2021A057520

PATIENT
  Sex: Male

DRUGS (1)
  1. SEROQUEL [Suspect]
     Active Substance: QUETIAPINE FUMARATE
     Dosage: 200 MG/DAY EIGHT MONTHS
     Route: 048

REACTIONS (7)
  - Stool analysis abnormal [Unknown]
  - Fatigue [Unknown]
  - Asthenia [Unknown]
  - Agitation [Unknown]
  - Feeling abnormal [Unknown]
  - Irritability [Unknown]
  - Thinking abnormal [Unknown]
